FAERS Safety Report 4738208-8 (Version None)
Quarter: 2005Q3

REPORT INFORMATION
  Report Type: 
  Country: None (occurrence: None)
  Receive Date: 20050803
  Receipt Date: 20050712
  Transmission Date: 20060218
  Serious: Yes (Disabling, Other)
  Sender: FDA-Public Use
  Company Number: US_991030103

PATIENT
  Age: 75 Year
  Sex: Female
  Weight: 55 kg

DRUGS (9)
  1. HUMALOG [Suspect]
     Indication: DIABETES MELLITUS INSULIN-DEPENDENT
     Dosage: 4 U/4 DAY
  2. HUMULIN N [Suspect]
     Indication: DIABETES MELLITUS INSULIN-DEPENDENT
  3. HUMULIN 70/30 [Concomitant]
     Indication: DIABETES MELLITUS INSULIN-DEPENDENT
     Dosage: 24 U DAY
     Dates: start: 20030101
  4. ATENOLOL [Concomitant]
  5. SYNTHROID [Concomitant]
  6. PLENDIL [Concomitant]
  7. PRAVACHOL [Concomitant]
  8. LOTREL [Concomitant]
  9. LEVOXYL [Concomitant]

REACTIONS (11)
  - BLOOD GLUCOSE FLUCTUATION [None]
  - CEREBRAL THROMBOSIS [None]
  - CEREBROVASCULAR ACCIDENT [None]
  - FALL [None]
  - GAIT DISTURBANCE [None]
  - GENERAL PHYSICAL CONDITION ABNORMAL [None]
  - HYDROCEPHALUS [None]
  - HYPERHIDROSIS [None]
  - HYPOGLYCAEMIA [None]
  - INCOHERENT [None]
  - SPEECH DISORDER [None]
